FAERS Safety Report 17196190 (Version 6)
Quarter: 2020Q2

REPORT INFORMATION
  Report Type: Spontaneous
  Country: IQ (occurrence: IQ)
  Receive Date: 20191224
  Receipt Date: 20200420
  Transmission Date: 20200713
  Serious: Yes (Death)
  Sender: FDA-Public Use
  Company Number: IQ-ROCHE-2501148

PATIENT
  Age: 53 Year
  Weight: 61 kg

DRUGS (11)
  1. LAPATINIB [Concomitant]
     Active Substance: LAPATINIB
     Route: 065
     Dates: start: 20190127, end: 20190306
  2. PERJETA [Concomitant]
     Active Substance: PERTUZUMAB
     Route: 065
     Dates: start: 20171017, end: 20180926
  3. DOCETAXEL. [Concomitant]
     Active Substance: DOCETAXEL
     Dosage: 4 CYCLES
     Route: 065
     Dates: start: 20160313, end: 20160510
  4. HERCEPTIN [Concomitant]
     Active Substance: TRASTUZUMAB
     Route: 065
     Dates: start: 20171017, end: 20180926
  5. HERCEPTIN [Concomitant]
     Active Substance: TRASTUZUMAB
     Dosage: 4 CYCLES
     Route: 065
     Dates: start: 20160313, end: 20160510
  6. HERCEPTIN [Concomitant]
     Active Substance: TRASTUZUMAB
     Route: 065
     Dates: start: 20170605, end: 20180109
  7. XELODA [Concomitant]
     Active Substance: CAPECITABINE
     Route: 048
     Dates: start: 20190127, end: 20190306
  8. VINORELBINE [Concomitant]
     Active Substance: VINORELBINE TARTRATE
     Route: 048
     Dates: start: 20171017, end: 20180926
  9. KADCYLA [Suspect]
     Active Substance: ADO-TRASTUZUMAB EMTANSINE
     Indication: BREAST CANCER
     Route: 042
     Dates: start: 20191203, end: 20191204
  10. ZOLADEX [Concomitant]
     Active Substance: GOSERELIN ACETATE
     Route: 065
     Dates: start: 20160605, end: 20170919
  11. ARIMIDEX [Concomitant]
     Active Substance: ANASTROZOLE
     Route: 065
     Dates: start: 20170605, end: 20180109

REACTIONS (2)
  - Suspected counterfeit product [Fatal]
  - Death [Fatal]
